FAERS Safety Report 23757928 (Version 1)
Quarter: 2024Q2

REPORT INFORMATION
  Report Type: Spontaneous
  Country: NL (occurrence: NL)
  Receive Date: 20240418
  Receipt Date: 20240418
  Transmission Date: 20240716
  Serious: Yes (Other)
  Sender: FDA-Public Use
  Company Number: NL-UCBSA-2024015397

PATIENT
  Sex: Female

DRUGS (12)
  1. TOPIRAMATE [Suspect]
     Active Substance: TOPIRAMATE
     Indication: Gene mutation
     Dosage: UNK
     Route: 065
  2. TOPIRAMATE [Suspect]
     Active Substance: TOPIRAMATE
     Indication: Neurodevelopmental disorder
  3. TOPIRAMATE [Suspect]
     Active Substance: TOPIRAMATE
     Indication: Enzyme level decreased
  4. TOPIRAMATE [Suspect]
     Active Substance: TOPIRAMATE
     Indication: Seizure
  5. VIGABATRIN [Suspect]
     Active Substance: VIGABATRIN
     Indication: Neurodevelopmental disorder
     Dosage: UNK
     Route: 065
  6. VIGABATRIN [Suspect]
     Active Substance: VIGABATRIN
     Indication: Gene mutation
  7. VIGABATRIN [Suspect]
     Active Substance: VIGABATRIN
     Indication: Seizure
  8. VIGABATRIN [Suspect]
     Active Substance: VIGABATRIN
     Indication: Enzyme level decreased
  9. LEVETIRACETAM [Suspect]
     Active Substance: LEVETIRACETAM
     Indication: Seizure
     Dosage: UNK
     Route: 065
  10. LEVETIRACETAM [Suspect]
     Active Substance: LEVETIRACETAM
     Indication: Enzyme level decreased
  11. LEVETIRACETAM [Suspect]
     Active Substance: LEVETIRACETAM
     Indication: Gene mutation
  12. LEVETIRACETAM [Suspect]
     Active Substance: LEVETIRACETAM
     Indication: Neurodevelopmental disorder

REACTIONS (3)
  - Epilepsy [Not Recovered/Not Resolved]
  - Multiple-drug resistance [Unknown]
  - Off label use [Unknown]
